FAERS Safety Report 23395820 (Version 1)
Quarter: 2024Q1

REPORT INFORMATION
  Report Type: Spontaneous
  Country: US (occurrence: US)
  Receive Date: 20240112
  Receipt Date: 20240112
  Transmission Date: 20240410
  Serious: Yes (Hospitalization, Other)
  Sender: FDA-Public Use
  Company Number: US-MACLEODS PHARMACEUTICALS US LTD-MAC2024045247

PATIENT

DRUGS (4)
  1. LIDOCAINE [Suspect]
     Active Substance: LIDOCAINE
     Indication: Back pain
     Dosage: 2 MILLILITER, INJECTION, TOTAL 6 ML SOLUTION CONTAINING 2 ML OF 1% LIDOCAINE, 80 MG OF METHYLPREDNIS
     Route: 008
  2. SALINE [Suspect]
     Active Substance: SODIUM CHLORIDE
     Indication: Back pain
     Dosage: 2 MILLILITER, SINGLE (TOTAL 6 ML SOLUTION CONTAINING 2 ML OF 1% LIDOCAINE, 80 MG OF METHYLPREDNISOLO
     Route: 008
  3. DEPO-MEDROL [Suspect]
     Active Substance: METHYLPREDNISOLONE ACETATE
     Indication: Back pain
     Dosage: 80 MILLIGRAM, SINGLE ((TOTAL 6 ML SOLUTION CONTAINING 2 ML OF 1% LIDOCAINE, 80 MG OF METHYLPREDNISOL
     Route: 008
  4. IOHEXOL [Suspect]
     Active Substance: IOHEXOL
     Indication: Epidural injection
     Dosage: 1 MILLILITER, SINGLE
     Route: 008

REACTIONS (3)
  - Meningitis chemical [Recovered/Resolved]
  - Meningitis aseptic [Recovered/Resolved]
  - Product administration error [Recovered/Resolved]
